FAERS Safety Report 6222691-5 (Version None)
Quarter: 2009Q2

REPORT INFORMATION
  Report Type: 
  Country: None (occurrence: None)
  Receive Date: 20090609
  Receipt Date: 20090525
  Transmission Date: 20091009
  Serious: Yes (Other)
  Sender: FDA-Public Use
  Company Number: 230279K09CAN

PATIENT
  Sex: Female

DRUGS (1)
  1. REBIF [Suspect]
     Indication: MULTIPLE SCLEROSIS
     Dosage: 44 MCG, 3 IN 1 WEEKS
     Dates: start: 20010101

REACTIONS (4)
  - ANOREXIA [None]
  - MULTIPLE SCLEROSIS RELAPSE [None]
  - VOMITING [None]
  - WEIGHT DECREASED [None]
